FAERS Safety Report 21256404 (Version 1)
Quarter: 2022Q3

REPORT INFORMATION
  Report Type: Spontaneous
  Country: US (occurrence: US)
  Receive Date: 20220826
  Receipt Date: 20220826
  Transmission Date: 20221027
  Serious: Yes (Death, Other)
  Sender: FDA-Public Use
  Company Number: US-MALLINCKRODT-T202204517

PATIENT
  Age: 49 Year
  Sex: Male

DRUGS (2)
  1. INOMAX [Suspect]
     Active Substance: NITRIC OXIDE
     Indication: HIV infection
     Dosage: 20 PPM (INHALATION)
     Route: 055
     Dates: start: 20220816, end: 20220822
  2. INOMAX [Suspect]
     Active Substance: NITRIC OXIDE
     Indication: Neoplasm malignant

REACTIONS (4)
  - Death [Fatal]
  - Oxygen saturation decreased [Unknown]
  - Product use issue [Unknown]
  - Product use in unapproved indication [Unknown]

NARRATIVE: CASE EVENT DATE: 20220816
